FAERS Safety Report 21556184 (Version 2)
Quarter: 2023Q2

REPORT INFORMATION
  Report Type: Report from Study
  Country: DE (occurrence: DE)
  Receive Date: 20221104
  Receipt Date: 20230421
  Transmission Date: 20230722
  Serious: Yes (Death, Hospitalization, Other)
  Sender: FDA-Public Use
  Company Number: DE-UCBSA-2022053751

PATIENT
  Sex: Female

DRUGS (1)
  1. CERTOLIZUMAB PEGOL [Suspect]
     Active Substance: CERTOLIZUMAB PEGOL
     Indication: Rheumatoid arthritis
     Dosage: 200 MILLIGRAM, EV 2 WEEKS(QOW)
     Dates: start: 201502

REACTIONS (10)
  - Multiple organ dysfunction syndrome [Fatal]
  - Acute respiratory distress syndrome [Fatal]
  - COVID-19 pneumonia [Fatal]
  - Peripheral arterial occlusive disease [Unknown]
  - Anaemia macrocytic [Unknown]
  - Angioplasty [Unknown]
  - Endarterectomy [Unknown]
  - Prosthesis user [Unknown]
  - Superinfection bacterial [Unknown]
  - Gastric mucosa erythema [Unknown]

NARRATIVE: CASE EVENT DATE: 20220101
